FAERS Safety Report 19233253 (Version 3)
Quarter: 2021Q2

REPORT INFORMATION
  Report Type: Spontaneous
  Country: US (occurrence: US)
  Receive Date: 20210507
  Receipt Date: 20210602
  Transmission Date: 20210717
  Serious: Yes (Other)
  Sender: FDA-Public Use
  Company Number: NVSC2021US099800

PATIENT
  Age: 12 Year
  Sex: Female
  Weight: 31.1 kg

DRUGS (8)
  1. NEUTRA?PHOS [Concomitant]
     Active Substance: POTASSIUM PHOSPHATE, DIBASIC\POTASSIUM PHOSPHATE, MONOBASIC\SODIUM PHOSPHATE, DIBASIC\SODIUM PHOSPHATE, MONOBASIC
     Indication: HYPOPHOSPHATAEMIA
     Dosage: 250 MG, BID
     Route: 048
     Dates: start: 20210420
  2. NEUTRA?PHOS [Concomitant]
     Active Substance: POTASSIUM PHOSPHATE, DIBASIC\POTASSIUM PHOSPHATE, MONOBASIC\SODIUM PHOSPHATE, DIBASIC\SODIUM PHOSPHATE, MONOBASIC
     Indication: HYPOKALAEMIA
  3. KYMRIAH [Suspect]
     Active Substance: TISAGENLECLEUCEL
     Indication: ACUTE MYELOID LEUKAEMIA RECURRENT
     Dosage: 1.4 X 10^6
     Route: 042
     Dates: start: 20180425
  4. DASATINIB. [Concomitant]
     Active Substance: DASATINIB
     Indication: PRODUCT USED FOR UNKNOWN INDICATION
     Dosage: 60 MG, QD
     Route: 048
     Dates: start: 20200714
  5. POTASSIUM CHLORIDE. [Concomitant]
     Active Substance: POTASSIUM CHLORIDE
     Indication: HYPOPHOSPHATAEMIA
     Dosage: 20 MEQ, BID
     Route: 048
     Dates: start: 20210223
  6. POTASSIUM CHLORIDE. [Concomitant]
     Active Substance: POTASSIUM CHLORIDE
     Indication: HYPOKALAEMIA
  7. BACITRACIN. [Concomitant]
     Active Substance: BACITRACIN
     Indication: SKIN INJURY
     Dosage: 500 DF, BID
     Route: 061
     Dates: start: 20210420, end: 20210422
  8. LEVOTHYROXINE. [Concomitant]
     Active Substance: LEVOTHYROXINE
     Indication: HYPOTHYROIDISM
     Dosage: 25 UG, QD
     Route: 048
     Dates: start: 20201201

REACTIONS (2)
  - Sweat gland tumour [Recovering/Resolving]
  - Neoplasm skin [Unknown]

NARRATIVE: CASE EVENT DATE: 20210420
